FAERS Safety Report 5072480-2 (Version None)
Quarter: 2006Q3

REPORT INFORMATION
  Report Type: 
  Country: None (occurrence: None)
  Receive Date: 20060801
  Receipt Date: 20060717
  Transmission Date: 20061208
  Serious: Yes (Hospitalization)
  Sender: FDA-Public Use
  Company Number: US200603001874

PATIENT
  Age: 65 Year
  Sex: Female

DRUGS (4)
  1. FORTEO [Suspect]
     Indication: OSTEOPOROSIS
     Dosage: D/F
     Dates: start: 20040811, end: 20051001
  2. FORTEO [Suspect]
     Dosage: D/F
     Dates: start: 20060201, end: 20060307
  3. FORTEO [Suspect]
     Dates: start: 20060221
  4. FORTEO [Concomitant]

REACTIONS (11)
  - ARTHRITIS [None]
  - BACK PAIN [None]
  - GENERAL PHYSICAL HEALTH DETERIORATION [None]
  - INFLUENZA LIKE ILLNESS [None]
  - INJECTION SITE ERYTHEMA [None]
  - LYMPH NODE PAIN [None]
  - LYMPHADENECTOMY [None]
  - LYMPHADENOPATHY [None]
  - MOBILITY DECREASED [None]
  - PAIN [None]
  - PHARMACEUTICAL PRODUCT COMPLAINT [None]
